FAERS Safety Report 12505148 (Version 1)
Quarter: 2016Q2

REPORT INFORMATION
  Report Type: Spontaneous
  Country: GB (occurrence: GB)
  Receive Date: 20160628
  Receipt Date: 20160628
  Transmission Date: 20160815
  Serious: Yes (Other)
  Sender: FDA-Public Use
  Company Number: GB-ACTAVISPR-2016-12820

PATIENT
  Sex: Female

DRUGS (2)
  1. TOPIRAMATE. [Suspect]
     Active Substance: TOPIRAMATE
     Indication: ESSENTIAL TREMOR
     Dosage: 100 MG, BID
     Route: 048
  2. TOPIRAMATE. [Suspect]
     Active Substance: TOPIRAMATE
     Dosage: 25 MG AT NIGHT
     Route: 048

REACTIONS (19)
  - Joint swelling [Unknown]
  - Hypokinesia [Unknown]
  - Dysphonia [Unknown]
  - Anal incontinence [Recovered/Resolved]
  - Palpitations [Unknown]
  - Hepatic enzyme increased [Unknown]
  - Diarrhoea [Unknown]
  - Constipation [Unknown]
  - Pruritus [Unknown]
  - Urinary incontinence [Unknown]
  - Gingival bleeding [Unknown]
  - Poor quality sleep [Unknown]
  - Abdominal pain [Unknown]
  - Renal cyst [Unknown]
  - Pancreatic cyst [Unknown]
  - Dysgraphia [Unknown]
  - Cough [Unknown]
  - Communication disorder [Unknown]
  - Cardiovascular disorder [Unknown]

NARRATIVE: CASE EVENT DATE: 2014
